FAERS Safety Report 5407971-5 (Version None)
Quarter: 2007Q3

REPORT INFORMATION
  Report Type: 
  Country: None (occurrence: None)
  Receive Date: 20070803
  Receipt Date: 20070725
  Transmission Date: 20080115
  Serious: Yes (Congenital Anomaly)
  Sender: FDA-Public Use
  Company Number: 2007327593

PATIENT

DRUGS (1)
  1. PSEUDOEPHEDRINE HCL [Suspect]
     Dosage: PLACENTAL
     Route: 064

REACTIONS (1)
  - INTESTINAL ATRESIA [None]
